FAERS Safety Report 11374240 (Version 1)
Quarter: 2015Q3

REPORT INFORMATION
  Report Type: Spontaneous
  Country: CA (occurrence: CA)
  Receive Date: 20150812
  Receipt Date: 20150812
  Transmission Date: 20151125
  Serious: Yes (Hospitalization)
  Sender: FDA-Public Use
  Company Number: CA-009507513-1508CAN004497

PATIENT
  Age: 54 Year
  Sex: Female
  Weight: 70 kg

DRUGS (4)
  1. BIOMED BIOCAL D FORTE [Concomitant]
     Route: 048
  2. SUBLINOX [Concomitant]
     Active Substance: ZOLPIDEM TARTRATE
     Route: 048
  3. INDERAL LA [Interacting]
     Active Substance: PROPRANOLOL HYDROCHLORIDE
     Indication: MIGRAINE PROPHYLAXIS
     Dosage: 160 MG, 1 EVERY 1 DAY
     Route: 048
  4. MAXALT [Suspect]
     Active Substance: RIZATRIPTAN BENZOATE
     Indication: MIGRAINE
     Dosage: 10 MG, AS REQUIRED
     Route: 048

REACTIONS (5)
  - Colitis ischaemic [Unknown]
  - Abdominal pain [Unknown]
  - Rectal haemorrhage [Unknown]
  - Potentiating drug interaction [Unknown]
  - Anaemia [Unknown]
